FAERS Safety Report 24636769 (Version 5)
Quarter: 2025Q1

REPORT INFORMATION
  Report Type: Spontaneous
  Country: US (occurrence: US)
  Receive Date: 20241119
  Receipt Date: 20250207
  Transmission Date: 20250408
  Serious: Yes (Other)
  Sender: PFIZER
  Company Number: US-PFIZER INC-202400299167

PATIENT
  Age: 5 Year
  Sex: Female

DRUGS (1)
  1. GENOTROPIN [Suspect]
     Active Substance: SOMATROPIN
     Dosage: 0.4 MG/DAY 7 DAYS/WK
     Dates: start: 202409

REACTIONS (8)
  - Drug ineffective [Unknown]
  - Drug dose omission by device [Unknown]
  - Accidental exposure to product [Unknown]
  - Exposure via skin contact [Unknown]
  - Poor quality device used [Unknown]
  - Device leakage [Unknown]
  - Injection site mass [Unknown]
  - Product dispensing error [Unknown]

NARRATIVE: CASE EVENT DATE: 20240101
